FAERS Safety Report 6669686-5 (Version None)
Quarter: 2010Q2

REPORT INFORMATION
  Report Type: 
  Country: None (occurrence: None)
  Receive Date: 20100402
  Receipt Date: 20100323
  Transmission Date: 20101027
  Serious: Yes (Other)
  Sender: FDA-Public Use
  Company Number: CLOF-1000771

PATIENT
  Age: 69 Year
  Sex: Female
  Weight: 71 kg

DRUGS (8)
  1. EVOLTRA (CLOFARABINE) SOLUTION FOR INFUSION, MG/M2 [Suspect]
     Indication: ACUTE MYELOID LEUKAEMIA
     Dosage: 30 MG/M2, QDX5, INTRAVENOUS
     Route: 042
     Dates: start: 20091107, end: 20091111
  2. TEMSIROLIMUS (TEMSIROLIMUS) INTRAVENOUS INFUSION, MG/M2 [Suspect]
     Indication: ACUTE MYELOID LEUKAEMIA
     Dosage: 25 MG, INTRAVENOUS
     Route: 042
     Dates: start: 20091107, end: 20091114
  3. AVALOX (MOXIFLOXACIN HYDROCHLORIDE) UNKNOWN [Concomitant]
  4. NOXAFIL [Concomitant]
  5. PROCAPTAN (PERINDOPRIL ERBUMINE) [Concomitant]
  6. GLYBORAL (CALCIUM CARBONATE, PHENOBARBITAL, PHENYTOIN SODIUM, POTASSIU [Concomitant]
  7. MORPHINE [Concomitant]
  8. ACYCLOVIR [Concomitant]

REACTIONS (5)
  - APRAXIA [None]
  - ATAXIA [None]
  - FALL [None]
  - MUSCULAR WEAKNESS [None]
  - NEUROPATHY PERIPHERAL [None]
